FAERS Safety Report 12350346 (Version 1)
Quarter: 2016Q2

REPORT INFORMATION
  Report Type: Spontaneous
  Country: US (occurrence: None)
  Receive Date: 20160509
  Receipt Date: 20160509
  Transmission Date: 20160815
  Serious: Yes (Other)
  Sender: FDA-Public Use
  Company Number: None

PATIENT
  Age: 71 Year
  Sex: Female
  Weight: 58.97 kg

DRUGS (11)
  1. MULTIVITAMIN [Concomitant]
     Active Substance: VITAMINS
  2. CALCIUM [Concomitant]
     Active Substance: CALCIUM
  3. VIT. D [Concomitant]
  4. PROLIA [Suspect]
     Active Substance: DENOSUMAB
     Indication: OSTEOPOROSIS
     Dosage: 1 INJECTION(S) ONCE PER 6 MONTH GIVEN INTO/UNDER THE SKIN
     Route: 058
     Dates: start: 20151216
  5. HCTZ [Concomitant]
     Active Substance: HYDROCHLOROTHIAZIDE
  6. LEVOTHROID [Concomitant]
     Active Substance: LEVOTHYROXINE SODIUM
  7. ZOMIG [Concomitant]
     Active Substance: ZOLMITRIPTAN
  8. COQ10 [Concomitant]
     Active Substance: UBIDECARENONE
  9. POTASSIUM [Concomitant]
     Active Substance: POTASSIUM
  10. MAGNESIUM [Concomitant]
     Active Substance: MAGNESIUM
  11. BIOTIN [Concomitant]
     Active Substance: BIOTIN

REACTIONS (5)
  - Pain in extremity [None]
  - Contusion [None]
  - Arthralgia [None]
  - Joint swelling [None]
  - Muscle rupture [None]

NARRATIVE: CASE EVENT DATE: 20160419
